FAERS Safety Report 10547702 (Version 2)
Quarter: 2015Q1

REPORT INFORMATION
  Report Type: Spontaneous
  Country: CA (occurrence: None)
  Receive Date: 20141024
  Receipt Date: 20150311
  Transmission Date: 20150720
  Serious: Yes (Death)
  Sender: FDA-Public Use
  Company Number: 1713747-2014-999185

PATIENT
  Sex: Female

DRUGS (5)
  1. NATURALYTE [Concomitant]
     Active Substance: ACETIC ACID\SODIUM ACETATE
  2. LIQUID BICARBONATE [Concomitant]
  3. 0.9% SODIUM CHLORIDE INJECTION, USP IN MINI-BAG PLUS CONTAINER [Suspect]
     Active Substance: SODIUM CHLORIDE
     Indication: CHRONIC KIDNEY DISEASE
     Dosage: HEMODIALYSIS
     Dates: start: 20141009
  4. K@HOME [Concomitant]
  5. ACID CONCENTRATE [Concomitant]
     Active Substance: DEVICE

REACTIONS (1)
  - Death [None]

NARRATIVE: CASE EVENT DATE: 20141009
